FAERS Safety Report 8707472 (Version 2)
Quarter: 2013Q4

REPORT INFORMATION
  Report Type: Spontaneous
  Country: US (occurrence: US)
  Receive Date: 20120804
  Receipt Date: 20131101
  Transmission Date: 20140711
  Serious: No
  Sender: FDA-Public Use
  Company Number: US-009507513-1207USA011667

PATIENT
  Age: 40 Year
  Sex: Female

DRUGS (3)
  1. JANUVIA [Suspect]
     Dosage: 100 MG, QD
  2. GLIPIZIDE [Concomitant]
     Dosage: 10 MG, BID
  3. METFORMIN [Concomitant]
     Dosage: 1000 MG, BID

REACTIONS (1)
  - Nausea [Recovered/Resolved]
